FAERS Safety Report 5337025-8 (Version None)
Quarter: 2007Q2

REPORT INFORMATION
  Report Type: 
  Country: None (occurrence: None)
  Receive Date: 20070529
  Receipt Date: 20070518
  Transmission Date: 20071010
  Serious: Yes (Death)
  Sender: FDA-Public Use
  Company Number: JP-SANOFI-SYNTHELABO-A01200704773

PATIENT
  Sex: Female
  Weight: 47 kg

DRUGS (9)
  1. DUROTEP [Concomitant]
     Route: 050
     Dates: start: 20070127, end: 20070425
  2. MORPHINE [Concomitant]
     Route: 048
     Dates: start: 20070127, end: 20070425
  3. PAXIL [Concomitant]
     Route: 048
     Dates: start: 20070131, end: 20070425
  4. EURODIN [Concomitant]
     Route: 048
     Dates: start: 20061229, end: 20070425
  5. DECADRON [Concomitant]
     Route: 041
     Dates: start: 20070220, end: 20070417
  6. SEROTONE [Concomitant]
     Route: 041
     Dates: start: 20070220, end: 20070417
  7. ISOVORIN [Concomitant]
     Route: 041
     Dates: start: 20070220, end: 20070418
  8. FLUOROURACIL [Suspect]
     Dosage: 500 MG/BODY IN BOLUS THEN 600 MG/BODY AS INFUSION
     Route: 042
     Dates: start: 20070220, end: 20070418
  9. OXALIPLATIN [Suspect]
     Indication: COLON CANCER
     Route: 042
     Dates: start: 20070417, end: 20070417

REACTIONS (3)
  - INFECTION [None]
  - LEUKOPENIA [None]
  - NEUTROPENIA [None]
